FAERS Safety Report 8848327 (Version 1)
Quarter: 2012Q4

REPORT INFORMATION
  Report Type: 
  Country: CO (occurrence: CO)
  Receive Date: 20121019
  Receipt Date: 20121019
  Transmission Date: 20130627
  Serious: Yes (Other)
  Sender: FDA-Public Use
  Company Number: CO-AMGEN-COLSP2012066371

PATIENT
  Age: 63 Year
  Sex: Male

DRUGS (7)
  1. ENBREL [Suspect]
     Indication: RHEUMATOID ARTHRITIS
     Dosage: 50 mg, weekly
     Dates: start: 201107, end: 20120412
  2. LEFLUNOMIDE [Concomitant]
     Dosage: 20 mg, 1x/day
  3. ACETAMINOPHEN [Concomitant]
     Dosage: 500 mg, 3x/day
  4. ENALAPRIL [Concomitant]
     Dosage: 20 mg, 2x/day
  5. ASA [Concomitant]
     Dosage: 100 mg, 1x/day
  6. OMEPRAZOL                          /00661201/ [Concomitant]
     Dosage: 20 mg, 1x/day
  7. CALCIUM CARBONATE W/COLECALCIFEROL [Concomitant]
     Dosage: 600 mg + 200 IU per day

REACTIONS (4)
  - Iridocyclitis [Not Recovered/Not Resolved]
  - Trigger finger [Unknown]
  - Arthralgia [Unknown]
  - Pain in extremity [Unknown]
